FAERS Safety Report 5241168-7 (Version None)
Quarter: 2007Q1

REPORT INFORMATION
  Report Type: 
  Country: None (occurrence: None)
  Receive Date: 20070220
  Receipt Date: 20070208
  Transmission Date: 20070707
  Serious: Yes (Hospitalization)
  Sender: FDA-Public Use
  Company Number: JP-JNJFOC-20070200779

PATIENT
  Sex: Female
  Weight: 48 kg

DRUGS (14)
  1. REMICADE [Suspect]
     Route: 042
  2. REMICADE [Suspect]
     Route: 042
  3. REMICADE [Suspect]
     Route: 042
  4. REMICADE [Suspect]
     Route: 042
  5. REMICADE [Suspect]
     Route: 042
  6. REMICADE [Suspect]
     Indication: RHEUMATOID ARTHRITIS
     Route: 042
  7. RHEUMATREX [Suspect]
     Indication: RHEUMATOID ARTHRITIS
     Route: 048
  8. PREDONINE [Suspect]
     Indication: RHEUMATOID ARTHRITIS
     Route: 042
  9. LOXONIN [Suspect]
     Indication: RHEUMATOID ARTHRITIS
     Route: 048
  10. ALFAROL [Suspect]
     Indication: RHEUMATOID ARTHRITIS
     Dosage: 1 RG
     Route: 048
  11. SELBEX [Suspect]
     Indication: PROPHYLAXIS
     Dosage: 1 RG
     Route: 048
  12. ZANTAC [Suspect]
     Indication: PROPHYLAXIS
     Dosage: 1 RG
     Route: 048
  13. ISCOTIN [Suspect]
     Indication: INFECTION PROPHYLAXIS
     Dosage: 1 RG
     Route: 048
  14. SOLANAX [Suspect]
     Indication: INSOMNIA
     Dosage: 1 RG
     Route: 048

REACTIONS (3)
  - DELIRIUM [None]
  - DIARRHOEA [None]
  - VOMITING [None]
